FAERS Safety Report 8710882 (Version 2)
Quarter: 2012Q4

REPORT INFORMATION
  Report Type: 
  Country: CO (occurrence: CO)
  Receive Date: 20120807
  Receipt Date: 20121011
  Transmission Date: 20130627
  Serious: Yes (Death, Hospitalization, Other)
  Sender: FDA-Public Use
  Company Number: PHHY2012CO067483

PATIENT
  Age: 59 Year
  Sex: Male

DRUGS (5)
  1. SANDOSTATIN LAR [Suspect]
     Indication: ACROMEGALY
     Dosage: 30 mg, UNK
     Route: 042
     Dates: start: 20111227
  2. ACETYLSALICYLIC ACID [Concomitant]
  3. ENALAPRIL [Concomitant]
  4. FUROSEMIDE [Concomitant]
  5. LOSARTAN [Concomitant]

REACTIONS (6)
  - Acute myocardial infarction [Fatal]
  - Myocardial infarction [Unknown]
  - Back pain [Unknown]
  - Loss of consciousness [Unknown]
  - Fall [Unknown]
  - Injury [Unknown]
